FAERS Safety Report 9073858 (Version 1)
Quarter: 2013Q1

REPORT INFORMATION
  Report Type: Report from Study
  Country: US (occurrence: US)
  Receive Date: 20130129
  Receipt Date: 20130129
  Transmission Date: 20140127
  Serious: No
  Sender: FDA-Public Use
  Company Number: US-ABBOTT-12P-163-0918292-00

PATIENT
  Sex: Female
  Weight: 58.11 kg

DRUGS (3)
  1. HUMIRA 40 MG/0.8 ML PEN [Suspect]
     Indication: RHEUMATOID ARTHRITIS
     Route: 058
     Dates: start: 2010, end: 201103
  2. HUMIRA 40 MG/0.8 ML PEN [Suspect]
     Route: 058
     Dates: start: 201101
  3. PENICILLIN NOS [Suspect]
     Indication: BRONCHITIS
     Dates: start: 2011, end: 2011

REACTIONS (3)
  - Pruritus generalised [Recovered/Resolved]
  - Fungal infection [Recovered/Resolved]
  - Bronchitis [Recovered/Resolved]
